FAERS Safety Report 9441554 (Version 2)
Quarter: 2013Q4

REPORT INFORMATION
  Report Type: Report from Study
  Country: CN (occurrence: CN)
  Receive Date: 20130805
  Receipt Date: 20131213
  Transmission Date: 20140711
  Serious: Yes (Hospitalization)
  Sender: FDA-Public Use
  Company Number: CN-ROCHE-1257407

PATIENT
  Age: 70 Year
  Sex: Male
  Weight: 72 kg

DRUGS (2)
  1. AVASTIN [Suspect]
     Indication: COLON CANCER
     Route: 042
     Dates: start: 20120820
  2. AVASTIN [Suspect]
     Route: 042
     Dates: start: 20121015, end: 201309

REACTIONS (2)
  - Cholecystitis [Unknown]
  - Gastroenteritis [Recovered/Resolved]
